FAERS Safety Report 7355504-9 (Version None)
Quarter: 2011Q1

REPORT INFORMATION
  Report Type: 
  Country: None (occurrence: None)
  Receive Date: 20110316
  Receipt Date: 20110307
  Transmission Date: 20110831
  Serious: Yes (Other)
  Sender: FDA-Public Use
  Company Number: A0912066A

PATIENT
  Age: 66 Year
  Sex: Female
  Weight: 95.5 kg

DRUGS (4)
  1. DIOVAN [Concomitant]
     Dosage: 160MG UNKNOWN
     Route: 065
     Dates: start: 20070426
  2. VENTOLIN [Concomitant]
     Dosage: 2PUFF AS REQUIRED
     Route: 065
     Dates: start: 20070620
  3. COLCHICINE [Concomitant]
     Dosage: 1.8MG PER DAY
     Route: 065
     Dates: start: 20070412
  4. ADVAIR DISKUS 100/50 [Suspect]
     Indication: ASTHMA
     Dosage: 250MCG UNKNOWN
     Route: 065
     Dates: start: 20101130, end: 20101217

REACTIONS (2)
  - ASTHMA [None]
  - PRODUCT QUALITY ISSUE [None]
